FAERS Safety Report 9711804 (Version 2)
Quarter: 2014Q1

REPORT INFORMATION
  Report Type: Report from Study
  Country: DE (occurrence: DE)
  Receive Date: 20131126
  Receipt Date: 20140107
  Transmission Date: 20141002
  Serious: Yes (Hospitalization)
  Sender: FDA-Public Use
  Company Number: DE-ROCHE-1304245

PATIENT
  Age: 51 Year
  Sex: Female
  Weight: 75 kg

DRUGS (3)
  1. TRASTUZUMAB [Suspect]
     Indication: NON-SMALL CELL LUNG CANCER
     Dosage: TIME BETWEEN THE LAST DRUG ADMINISTARTION AND START OF EVENT: 2 DAYS.
     Route: 042
     Dates: start: 20130521, end: 20131107
  2. AUY922 [Suspect]
     Indication: NON-SMALL CELL LUNG CANCER
     Dosage: TIME BETWEEN THE LAST DRUG ADMINISTARTION AND START OF EVENT: 2 DAYS.
     Route: 042
     Dates: start: 20130826, end: 20131107
  3. DEXAMETHASONE [Concomitant]
     Indication: METASTASES TO CENTRAL NERVOUS SYSTEM
     Dosage: PRN
     Route: 048
     Dates: start: 20130930

REACTIONS (2)
  - Rectal haemorrhage [Recovered/Resolved]
  - Intestinal haemorrhage [Recovered/Resolved]
